FAERS Safety Report 6091608-9 (Version None)
Quarter: 2009Q1

REPORT INFORMATION
  Report Type: 
  Country: None (occurrence: None)
  Receive Date: 20090225
  Receipt Date: 20080215
  Transmission Date: 20090719
  Serious: No
  Sender: FDA-Public Use
  Company Number: A0710834A

PATIENT
  Age: 29 Year
  Sex: Male

DRUGS (2)
  1. VALTREX [Suspect]
     Indication: GENITAL HERPES
     Dosage: 500MG PER DAY
     Route: 048
  2. LYSINE [Concomitant]

REACTIONS (1)
  - DRUG INEFFECTIVE [None]
